FAERS Safety Report 5916323-0 (Version None)
Quarter: 2008Q4

REPORT INFORMATION
  Report Type: 
  Country: None (occurrence: None)
  Receive Date: 20081013
  Receipt Date: 20081008
  Transmission Date: 20090506
  Serious: Yes (Death)
  Sender: FDA-Public Use
  Company Number: PHFR2007GB01904

PATIENT
  Age: 2 Year
  Sex: Female

DRUGS (1)
  1. CARBAMAZEPINE [Suspect]
     Dosage: MORE THAN 200 MG TABLET
     Route: 065

REACTIONS (1)
  - ACCIDENTAL EXPOSURE [None]
